FAERS Safety Report 5869580-3 (Version None)
Quarter: 2008Q3

REPORT INFORMATION
  Report Type: 
  Country: None (occurrence: None)
  Receive Date: 20080904
  Receipt Date: 20080827
  Transmission Date: 20090109
  Serious: Yes (Hospitalization)
  Sender: FDA-Public Use
  Company Number: US-AMGEN-QUU304288

PATIENT
  Sex: Male

DRUGS (2)
  1. ENBREL [Suspect]
     Indication: RHEUMATOID ARTHRITIS
     Route: 058
     Dates: start: 20000526
  2. METHOTREXATE SODIUM [Concomitant]

REACTIONS (4)
  - DEVICE BREAKAGE [None]
  - FALL [None]
  - INJECTION SITE PAIN [None]
  - RHEUMATOID ARTHRITIS [None]
